FAERS Safety Report 9696715 (Version 1)
Quarter: 2013Q4

REPORT INFORMATION
  Report Type: Spontaneous
  Country: US (occurrence: US)
  Receive Date: 20131119
  Receipt Date: 20131119
  Transmission Date: 20140711
  Serious: No
  Sender: FDA-Public Use
  Company Number: US-GILEAD-2007-0014439

PATIENT
  Sex: Female
  Weight: 77.11 kg

DRUGS (12)
  1. LETAIRIS [Suspect]
     Indication: PULMONARY ARTERIAL HYPERTENSION
     Route: 048
     Dates: start: 20071008
  2. CYMBALTA [Concomitant]
     Route: 048
  3. LASIX [Concomitant]
     Route: 048
  4. COUMADIN [Concomitant]
     Route: 048
  5. ZYRTEC [Concomitant]
     Route: 048
  6. REVATIO [Concomitant]
     Route: 048
  7. AUGMENTIN [Concomitant]
     Route: 048
  8. ASTELIN [Concomitant]
     Route: 045
  9. NASACORT [Concomitant]
     Route: 045
  10. FERREX [Concomitant]
     Route: 048
  11. SINGULAIR [Concomitant]
     Route: 048
  12. REQUIP [Concomitant]
     Route: 048

REACTIONS (1)
  - Rash [Unknown]
